FAERS Safety Report 10420569 (Version 1)
Quarter: 2014Q2

REPORT INFORMATION
  Report Type: Spontaneous
  Country: US (occurrence: None)
  Receive Date: 20140627
  Receipt Date: 20140627
  Transmission Date: 20141212
  Serious: Yes (Other)
  Sender: FDA-Public Use
  Company Number: PHEH2013US014150

PATIENT
  Age: 69 Year
  Sex: Female

DRUGS (1)
  1. DIOVAN HCT (VALSARTAN, HYDROCHLOROTHIAZIDE) UNKNOWN [Suspect]
     Dosage: 320/ 25 MG, UNK

REACTIONS (3)
  - Blood pressure increased [None]
  - Blood pressure fluctuation [None]
  - Drug ineffective [None]
